FAERS Safety Report 26158489 (Version 1)
Quarter: 2025Q4

REPORT INFORMATION
  Report Type: Spontaneous
  Country: US (occurrence: US)
  Receive Date: 20251215
  Receipt Date: 20251215
  Transmission Date: 20260118
  Serious: No
  Sender: SHIONOGI
  Company Number: US-shionogi-202500013183

PATIENT
  Age: 45 Year
  Sex: Male

DRUGS (1)
  1. FETROJA [Suspect]
     Active Substance: CEFIDEROCOL SULFATE TOSYLATE
     Indication: Product used for unknown indication

REACTIONS (3)
  - Product storage error [Unknown]
  - Medication error [Unknown]
  - No adverse event [Unknown]
